FAERS Safety Report 6303947-4 (Version None)
Quarter: 2009Q3

REPORT INFORMATION
  Report Type: 
  Country: None (occurrence: None)
  Receive Date: 20090810
  Receipt Date: 20090810
  Transmission Date: 20100115
  Serious: Yes (Other)
  Sender: FDA-Public Use
  Company Number: None

PATIENT
  Age: 60 Year
  Sex: Female
  Weight: 61.2356 kg

DRUGS (3)
  1. ACTONEL [Suspect]
     Indication: OSTEOPENIA
     Dosage: ONE TABLET MONTHLY PO
     Route: 048
     Dates: start: 20090211, end: 20090511
  2. CALTRATE [Concomitant]
  3. PRAVASTATIN [Concomitant]

REACTIONS (3)
  - BLISTER [None]
  - PRURITUS [None]
  - SKIN REACTION [None]
